FAERS Safety Report 6651315-8 (Version None)
Quarter: 2010Q1

REPORT INFORMATION
  Report Type: 
  Country: None (occurrence: None)
  Receive Date: 20100325
  Receipt Date: 20100312
  Transmission Date: 20100710
  Serious: Yes (Life-Threatening, Hospitalization)
  Sender: FDA-Public Use
  Company Number: US-BRISTOL-MYERS SQUIBB COMPANY-15023146

PATIENT
  Age: 44 Year
  Sex: Male
  Weight: 105 kg

DRUGS (22)
  1. ATAZANAVIR [Suspect]
     Indication: HIV INFECTION
     Dosage: TABS, INTERRUPTED ON 02-AUG-2008 AND LATER DISCONTINUED. 18MAY06-02AUG08 (808 DAY)
     Route: 048
     Dates: start: 20060518
  2. SUSTIVA [Suspect]
     Indication: HIV INFECTION
     Route: 048
     Dates: start: 20060518, end: 20070723
  3. RALTEGRAVIR [Suspect]
     Indication: HIV INFECTION
     Dosage: TABS, INTERRUPTED ON 02-AUG-2008 AND LATER DISCONTINUED. 18MAY06-02AUG08 (808 DAY)
     Route: 048
     Dates: start: 20060518
  4. DARUNAVIR [Suspect]
     Indication: HIV INFECTION
     Dosage: INTERRUPTED ON 02-AUG-2008 AND LATER DISCONTINUED. 18MAY06-02AUG08 (808 DAY)
     Route: 048
     Dates: start: 20060518
  5. TRUVADA [Suspect]
     Indication: HIV INFECTION
     Dosage: TABS
     Route: 048
     Dates: start: 20060518, end: 20071014
  6. RITONAVIR [Suspect]
     Indication: HIV INFECTION
     Dosage: TABS, INTERRUPTED ON 02-AUG-2008 AND LATER DISCONTINUED. 18MAY06-02AUG08 (808 DAY)
     Route: 048
     Dates: start: 20060518
  7. LAMIVUDINE [Suspect]
     Indication: HIV INFECTION
     Dosage: INTERRUPTED ON 02-AUG-2008 AND LATER DISCONTINUED. 15OCT07-02AUG08 (DUR-293 DAYS)
     Route: 048
     Dates: start: 20071015
  8. ALBUTEROL [Concomitant]
     Dates: start: 19920701
  9. LIPITOR [Concomitant]
  10. AZITHROMYCIN [Concomitant]
     Dates: start: 20060518
  11. QVAR 40 [Concomitant]
     Dates: start: 20010701
  12. BISOPROLOL [Concomitant]
     Dates: start: 20051015
  13. FAMVIR [Concomitant]
     Dates: start: 20020701
  14. FLUNISOLIDE [Concomitant]
     Dates: start: 20050615
  15. GLIPIZIDE [Concomitant]
     Dates: start: 20040715
  16. HYDROCHLOROTHIAZIDE [Concomitant]
     Dates: start: 20061102, end: 20071011
  17. LISINOPRIL [Concomitant]
     Dates: start: 20071005, end: 20071011
  18. LORATADINE [Concomitant]
     Dates: start: 20060601
  19. NYSTATIN [Concomitant]
     Dates: start: 20060415
  20. SEREVENT [Concomitant]
     Dates: start: 20040615
  21. SEPTRA DS [Concomitant]
     Dates: start: 20060515
  22. VITAMIN D [Concomitant]

REACTIONS (4)
  - ATRIAL FIBRILLATION [None]
  - BLOOD GLUCOSE INCREASED [None]
  - CEREBROVASCULAR ACCIDENT [None]
  - RENAL FAILURE ACUTE [None]
